FAERS Safety Report 26026857 (Version 2)
Quarter: 2025Q4

REPORT INFORMATION
  Report Type: Report from Study
  Country: JP (occurrence: JP)
  Receive Date: 20251111
  Receipt Date: 20251121
  Transmission Date: 20260117
  Serious: Yes (Hospitalization)
  Sender: ELI LILLY AND COMPANY
  Company Number: JP-ELI_LILLY_AND_COMPANY-JP202511007278AA

PATIENT
  Age: 82 Year
  Sex: Female

DRUGS (2)
  1. KISUNLA [Suspect]
     Active Substance: DONANEMAB-AZBT
     Indication: Cognitive disorder
     Dosage: UNK
     Route: 041
     Dates: start: 20250509
  2. KISUNLA [Suspect]
     Active Substance: DONANEMAB-AZBT
     Dosage: 1400 MG
     Route: 041

REACTIONS (1)
  - Traumatic subarachnoid haemorrhage [Unknown]

NARRATIVE: CASE EVENT DATE: 20251105
